FAERS Safety Report 22966824 (Version 2)
Quarter: 2023Q4

REPORT INFORMATION
  Report Type: Spontaneous
  Country: US (occurrence: US)
  Receive Date: 20230921
  Receipt Date: 20231024
  Transmission Date: 20240110
  Serious: No
  Sender: FDA-Public Use
  Company Number: US-PFIZER INC-202300304780

PATIENT
  Age: 76 Year
  Sex: Female
  Weight: 70.76 kg

DRUGS (1)
  1. PAXLOVID [Suspect]
     Active Substance: NIRMATRELVIR\RITONAVIR
     Indication: COVID-19 treatment
     Dosage: UNK
     Dates: start: 20230627, end: 20230630

REACTIONS (6)
  - Dehydration [Unknown]
  - Vomiting [Recovered/Resolved]
  - Tooth disorder [Recovered/Resolved]
  - Dysgeusia [Not Recovered/Not Resolved]
  - Oral pain [Unknown]
  - Hypoaesthesia oral [Unknown]

NARRATIVE: CASE EVENT DATE: 20230627
